FAERS Safety Report 10631807 (Version 1)
Quarter: 2014Q4

REPORT INFORMATION
  Report Type: Spontaneous
  Country: US (occurrence: None)
  Receive Date: 20141203
  Receipt Date: 20141203
  Transmission Date: 20150529
  Serious: Yes (Life-Threatening, Hospitalization, Other)
  Sender: FDA-Public Use
  Company Number: None

PATIENT
  Age: 59 Year
  Sex: Male
  Weight: 85.73 kg

DRUGS (2)
  1. SEROQUEL [Suspect]
     Active Substance: QUETIAPINE FUMARATE
     Indication: SEIZURE
     Dosage: 4
     Route: 048
     Dates: start: 20080107, end: 20141202
  2. SEROQUEL [Suspect]
     Active Substance: QUETIAPINE FUMARATE
     Indication: DEPRESSION
     Dosage: 4
     Route: 048
     Dates: start: 20080107, end: 20141202

REACTIONS (7)
  - Seizure [None]
  - Gastritis [None]
  - Confusional state [None]
  - Status epilepticus [None]
  - Feeling abnormal [None]
  - Dementia [None]
  - Insomnia [None]

NARRATIVE: CASE EVENT DATE: 20141024
